FAERS Safety Report 4815348-6 (Version None)
Quarter: 2005Q4

REPORT INFORMATION
  Report Type: 
  Country: None (occurrence: None)
  Receive Date: 20051027
  Receipt Date: 20051018
  Transmission Date: 20060501
  Serious: Yes (Death, Hospitalization)
  Sender: FDA-Public Use
  Company Number: 163-20785-05090297

PATIENT
  Age: 40 Year
  Sex: Female

DRUGS (8)
  1. THALOMID [Suspect]
     Indication: LYMPHOMA
     Dosage: 50 MG, DAILY, ORAL
     Route: 048
     Dates: start: 20050810, end: 20050816
  2. METHOTREXATE [Suspect]
     Indication: LYMPHOMA
     Dosage: 200MG/M2 OVER 2HRS THEN 800MG/M2 OVER 22HR, INTRAVENOUS DRIP
     Route: 041
     Dates: start: 20050725, end: 20050725
  3. CYTARABINE [Suspect]
     Indication: LYMPHOMA
     Dosage: 3 GM/M2 OVER 2 HRS EVERY 12 HR. TIMES 4 DOSES, INTRAVENOUS DRIP
     Route: 041
     Dates: start: 20050726, end: 20050728
  4. METOPROLOL TARTRATE [Concomitant]
  5. ENOXAPARIN SODIUM [Concomitant]
  6. OMEPRAZOLE [Concomitant]
  7. TYLENOL W/ CODEINE NO. 3 [Concomitant]
  8. GUAIFENESIN (GUAIFENESIN) [Concomitant]

REACTIONS (5)
  - ENDOCARDITIS STAPHYLOCOCCAL [None]
  - LYMPHOMA [None]
  - MALIGNANT NEOPLASM PROGRESSION [None]
  - MITRAL VALVE INCOMPETENCE [None]
  - SEPSIS [None]
